FAERS Safety Report 9267620 (Version 4)
Quarter: 2013Q3

REPORT INFORMATION
  Report Type: Spontaneous
  Country: JP (occurrence: JP)
  Receive Date: 20130502
  Receipt Date: 20130703
  Transmission Date: 20140515
  Serious: Yes (Hospitalization)
  Sender: FDA-Public Use
  Company Number: JP-PFIZER INC-2013090303

PATIENT
  Age: 78 Year
  Sex: Male
  Weight: 63 kg

DRUGS (5)
  1. CELECOX [Suspect]
     Indication: BACK PAIN
     Dosage: 100 MG, 2X/DAY
     Route: 048
     Dates: start: 20121207, end: 20130216
  2. MUCOSTA [Concomitant]
     Indication: GASTRITIS
     Dosage: UNK
     Dates: start: 20121219, end: 20130216
  3. MUCOSTA [Concomitant]
     Indication: GASTRITIS PROPHYLAXIS
  4. MEVAN [Concomitant]
     Indication: DYSLIPIDAEMIA
     Dosage: UNK
     Dates: start: 20121220, end: 20130216
  5. AMLODIPINE BESILATE [Concomitant]
     Indication: HYPERTENSION
     Dosage: UNK
     Dates: start: 20121220, end: 20130216

REACTIONS (3)
  - Hyponatraemia [Recovering/Resolving]
  - Depressed level of consciousness [Not Recovered/Not Resolved]
  - Back pain [Recovering/Resolving]
